FAERS Safety Report 5973696-0 (Version None)
Quarter: 2008Q4

REPORT INFORMATION
  Report Type: 
  Country: None (occurrence: None)
  Receive Date: 20081201
  Receipt Date: 20081120
  Transmission Date: 20090506
  Serious: Yes (Hospitalization)
  Sender: FDA-Public Use
  Company Number: IT-B.I. PHARMACEUTICALS,INC./RIDGEFIELD-2008-IT-00200IT

PATIENT
  Sex: Male

DRUGS (2)
  1. VIRAMUNE [Suspect]
     Indication: HIV INFECTION
     Dosage: 400MG
     Route: 048
     Dates: start: 20080819, end: 20081003
  2. TRUVADA [Concomitant]
     Dosage: STRENGTH: 200MG/245 MG

REACTIONS (5)
  - APHTHOUS STOMATITIS [None]
  - CHEILITIS [None]
  - GLOSSITIS [None]
  - MUCOSAL INFLAMMATION [None]
  - RASH PAPULAR [None]
